FAERS Safety Report 9006914 (Version 3)
Quarter: 2013Q1

REPORT INFORMATION
  Report Type: Report from Study
  Country: US (occurrence: US)
  Receive Date: 20130110
  Receipt Date: 20130130
  Transmission Date: 20140127
  Serious: Yes (Hospitalization)
  Sender: FDA-Public Use
  Company Number: US-JNJFOC-20130103096

PATIENT
  Age: 13 Year
  Sex: Male
  Weight: 102.3 kg

DRUGS (3)
  1. REMICADE [Suspect]
     Indication: CROHN^S DISEASE
     Route: 042
     Dates: start: 20101002
  2. 5-ASA [Concomitant]
  3. OMEPRAZOLE [Concomitant]

REACTIONS (1)
  - Anal abscess [Recovered/Resolved]
